FAERS Safety Report 7076769-7 (Version None)
Quarter: 2010Q4

REPORT INFORMATION
  Report Type: 
  Country: None (occurrence: None)
  Receive Date: 20101029
  Receipt Date: 20101029
  Transmission Date: 20110411
  Serious: Yes (Life-Threatening, Disabling)
  Sender: FDA-Public Use
  Company Number: None

PATIENT
  Sex: Male
  Weight: 54.4316 kg

DRUGS (2)
  1. DIGOXIN TAB [Suspect]
     Indication: CARDIAC DISORDER
     Dosage: 0.125MG TABS ONE A DAY ORAL
     Route: 048
     Dates: start: 20080408, end: 20090101
  2. DIGOXIN [Suspect]
     Dosage: 0.125MG TABS ONE A DAY ORAL
     Route: 048
     Dates: start: 20090109

REACTIONS (6)
  - BALANCE DISORDER [None]
  - DECREASED APPETITE [None]
  - DRUG LEVEL INCREASED [None]
  - PRODUCT QUALITY ISSUE [None]
  - RENAL DISORDER [None]
  - WEIGHT DECREASED [None]
